FAERS Safety Report 7813943-3 (Version None)
Quarter: 2011Q4

REPORT INFORMATION
  Report Type: 
  Country: None (occurrence: None)
  Receive Date: 20111014
  Receipt Date: 20111011
  Transmission Date: 20120403
  Serious: Yes (Other)
  Sender: FDA-Public Use
  Company Number: CA-PFIZER INC-2011242665

PATIENT
  Age: 50 Year
  Sex: Female

DRUGS (2)
  1. EFFEXOR XR [Suspect]
     Dosage: 300 MG, UNK
  2. EFFEXOR XR [Suspect]
     Dosage: 150 MG, UNK

REACTIONS (6)
  - ANXIETY [None]
  - IRRITABILITY [None]
  - DRUG INEFFECTIVE [None]
  - GASTRIC BYPASS [None]
  - MOOD SWINGS [None]
  - INSOMNIA [None]
